FAERS Safety Report 4435681-X (Version None)
Quarter: 2004Q3

REPORT INFORMATION
  Report Type: 
  Country: None (occurrence: None)
  Receive Date: 20040726
  Receipt Date: 20040324
  Transmission Date: 20050211
  Serious: No
  Sender: FDA-Public Use
  Company Number: US_010362551

PATIENT
  Sex: Female

DRUGS (8)
  1. HUMALOG [Suspect]
     Indication: DIABETES MELLITUS
     Dosage: 20 U/DAY
     Dates: start: 20010101
  2. FORTEO [Suspect]
     Indication: OSTEOPOROSIS
     Dosage: 20 UG/1 DAY
     Dates: start: 20040321
  3. INSULIN HUMAN [Concomitant]
  4. MONOPRIL [Concomitant]
  5. ATENOLOL [Concomitant]
  6. LIPITOR [Concomitant]
  7. NITROGLYCERIN [Concomitant]
  8. CALCIUM CARBONATE [Concomitant]

REACTIONS (5)
  - CHEST DISCOMFORT [None]
  - DIZZINESS [None]
  - HEART RATE INCREASED [None]
  - INJECTION SITE HAEMORRHAGE [None]
  - PALPITATIONS [None]
